FAERS Safety Report 4630276-7 (Version None)
Quarter: 2005Q2

REPORT INFORMATION
  Report Type: 
  Country: None (occurrence: None)
  Receive Date: 20050406
  Receipt Date: 20050318
  Transmission Date: 20051028
  Serious: Yes (Death, Life-Threatening)
  Sender: FDA-Public Use
  Company Number: EWC050343259

PATIENT
  Age: 66 Year
  Sex: Male

DRUGS (2)
  1. ZYPREXA [Suspect]
     Indication: MAJOR DEPRESSION
     Dosage: 10 MG/2
     Dates: start: 20050317, end: 20050317
  2. MIRTAZAPINE [Concomitant]

REACTIONS (1)
  - CARDIO-RESPIRATORY ARREST [None]
